FAERS Safety Report 5647206-1 (Version None)
Quarter: 2008Q1

REPORT INFORMATION
  Report Type: 
  Country: None (occurrence: None)
  Receive Date: 20080228
  Receipt Date: 20080228
  Transmission Date: 20080703
  Serious: Yes (Death)
  Sender: FDA-Public Use
  Company Number: None

PATIENT
  Age: 25 Year
  Sex: Male
  Weight: 65.7716 kg

DRUGS (1)
  1. METHADONE HCL [Suspect]

REACTIONS (1)
  - ALCOHOL USE [None]
